FAERS Safety Report 9234940 (Version 1)
Quarter: 2013Q2

REPORT INFORMATION
  Report Type: Spontaneous
  Country: US (occurrence: US)
  Receive Date: 20130416
  Receipt Date: 20130416
  Transmission Date: 20140414
  Serious: No
  Sender: FDA-Public Use
  Company Number: US-BANPHARM-20120355

PATIENT
  Age: 55 Year
  Sex: Female
  Weight: 108.9 kg

DRUGS (4)
  1. ALEVE LIQUID GELS 220 MG [Suspect]
     Indication: BACK PAIN
     Dosage: 1 DF, BID,
     Route: 048
     Dates: start: 201211, end: 201211
  2. HYDROCORTISONE [Concomitant]
  3. THYROID MEDICATION [Concomitant]
  4. OMEPRAZOLE [Concomitant]

REACTIONS (2)
  - Drug effect incomplete [Unknown]
  - Incorrect dose administered [Unknown]
